FAERS Safety Report 7706081-1 (Version None)
Quarter: 2011Q3

REPORT INFORMATION
  Report Type: 
  Country: None (occurrence: None)
  Receive Date: 20110824
  Receipt Date: 20110815
  Transmission Date: 20111222
  Serious: Yes (Death)
  Sender: FDA-Public Use
  Company Number: US-BAXTER-2011BH026589

PATIENT
  Sex: Female

DRUGS (1)
  1. DIANEAL [Suspect]
     Indication: PERITONEAL DIALYSIS
     Route: 033
     Dates: end: 20110814

REACTIONS (4)
  - CARDIAC FAILURE [None]
  - LUNG NEOPLASM MALIGNANT [None]
  - HEPATIC NEOPLASM MALIGNANT [None]
  - BONE NEOPLASM MALIGNANT [None]
